FAERS Safety Report 4610342-2 (Version None)
Quarter: 2005Q1

REPORT INFORMATION
  Report Type: 
  Country: None (occurrence: None)
  Receive Date: 20050314
  Receipt Date: 20050307
  Transmission Date: 20050727
  Serious: Yes (Death, Hospitalization)
  Sender: FDA-Public Use
  Company Number: 2005UW03672

PATIENT
  Age: 32 Year
  Sex: Female
  Weight: 67.131 kg

DRUGS (2)
  1. DIPRIVAN [Suspect]
     Indication: SEDATION
     Dosage: 190 UG/KG/MIN IV
     Route: 042
     Dates: start: 20050223
  2. PAXIL [Concomitant]

REACTIONS (9)
  - ARRHYTHMIA [None]
  - BLOOD CREATINE PHOSPHOKINASE INCREASED [None]
  - BLOOD TRIGLYCERIDES INCREASED [None]
  - INTRACRANIAL PRESSURE INCREASED [None]
  - METABOLIC ACIDOSIS [None]
  - MUSCULOSKELETAL STIFFNESS [None]
  - PERIPHERAL COLDNESS [None]
  - SKIN DISCOLOURATION [None]
  - VENTRICULAR TACHYCARDIA [None]
